FAERS Safety Report 6746056-2 (Version None)
Quarter: 2010Q2

REPORT INFORMATION
  Report Type: 
  Country: None (occurrence: None)
  Receive Date: 20100528
  Receipt Date: 20100521
  Transmission Date: 20101027
  Serious: Yes (Hospitalization)
  Sender: FDA-Public Use
  Company Number: US-PURDUE-USA-2010-0044115

PATIENT
  Age: 58 Year
  Sex: Female
  Weight: 89.72 kg

DRUGS (10)
  1. MS CONTIN [Suspect]
     Indication: PULMONARY EMBOLISM
  2. STUDY DRUG [Suspect]
     Indication: PULMONARY EMBOLISM
     Dosage: UNK
     Dates: start: 20100203
  3. DECADRON [Suspect]
     Indication: PULMONARY EMBOLISM
  4. DILANTIN [Suspect]
     Indication: PULMONARY EMBOLISM
  5. KEPPRA [Suspect]
     Indication: PULMONARY EMBOLISM
  6. LEVAQUIN [Suspect]
     Indication: PULMONARY EMBOLISM
  7. REGLAN [Suspect]
     Indication: PULMONARY EMBOLISM
  8. ADVAIR DISKUS 100/50 [Suspect]
     Indication: PULMONARY EMBOLISM
  9. ALBUTEROL [Suspect]
     Indication: PULMONARY EMBOLISM
  10. APIRIVA [Suspect]
     Indication: PULMONARY EMBOLISM

REACTIONS (1)
  - PULMONARY EMBOLISM [None]
